FAERS Safety Report 12089386 (Version 4)
Quarter: 2016Q2

REPORT INFORMATION
  Report Type: Spontaneous
  Country: US (occurrence: US)
  Receive Date: 20160218
  Receipt Date: 20160426
  Transmission Date: 20160815
  Serious: Yes (Hospitalization, Other)
  Sender: FDA-Public Use
  Company Number: US-PFIZER INC-2016089044

PATIENT
  Age: 60 Year
  Sex: Female

DRUGS (4)
  1. NORCO [Concomitant]
     Active Substance: ACETAMINOPHEN\HYDROCODONE BITARTRATE
     Dosage: UNK
  2. SUTENT [Suspect]
     Active Substance: SUNITINIB MALATE
     Indication: METASTATIC RENAL CELL CARCINOMA
     Dosage: 50 MG, CYCLIC (DAILY FOR 14 DAYS ON, 7 DAYS OFF, THEN REPEAT 3 WEEK CYCLE. EACH CYCLE IS 6 WEEKS)
     Route: 048
  3. SUTENT [Suspect]
     Active Substance: SUNITINIB MALATE
     Dosage: 25 MG, CYCLIC ( 1 CAPSULE DAILY FOR 14 DAYS, THEN OFF FOR 7 DAYS. REPEAT. EACH CYCLE 6 WEEKS)
     Route: 048
  4. NEXIUM [Concomitant]
     Active Substance: ESOMEPRAZOLE MAGNESIUM
     Dosage: UNK

REACTIONS (6)
  - Depression [Unknown]
  - Dyspnoea [Unknown]
  - Pleural effusion [Unknown]
  - Fatigue [Unknown]
  - Cough [Unknown]
  - Pleuritic pain [Unknown]
